FAERS Safety Report 23185741 (Version 1)
Quarter: 2023Q4

REPORT INFORMATION
  Report Type: Spontaneous
  Country: CZ (occurrence: CZ)
  Receive Date: 20231115
  Receipt Date: 20231115
  Transmission Date: 20240109
  Serious: Yes (Hospitalization, Other)
  Sender: FDA-Public Use
  Company Number: CZ-BRISTOL-MYERS SQUIBB COMPANY-2023-160709

PATIENT
  Age: 63 Year
  Sex: Female

DRUGS (3)
  1. NIVOLUMAB [Suspect]
     Active Substance: NIVOLUMAB
     Indication: Malignant melanoma
     Dosage: DOSE : 2;
     Dates: start: 202201
  2. NIVOLUMAB [Suspect]
     Active Substance: NIVOLUMAB
     Dosage: DOSE : 2;
     Dates: start: 202205, end: 202212
  3. IPILIMUMAB [Suspect]
     Active Substance: IPILIMUMAB
     Indication: Malignant melanoma
     Dates: start: 202201

REACTIONS (6)
  - Polyp [Unknown]
  - Haemorrhoids [Unknown]
  - Diverticulum intestinal [Unknown]
  - Rash maculo-papular [Recovered/Resolved]
  - Diarrhoea [Recovered/Resolved]
  - Vitiligo [Unknown]

NARRATIVE: CASE EVENT DATE: 20220101
